FAERS Safety Report 5828422-2 (Version None)
Quarter: 2008Q3

REPORT INFORMATION
  Report Type: 
  Country: None (occurrence: None)
  Receive Date: 20080729
  Receipt Date: 20080723
  Transmission Date: 20090109
  Serious: Yes (Death, Hospitalization)
  Sender: FDA-Public Use
  Company Number: POMP-1000111

PATIENT
  Age: 80 Year
  Sex: Male

DRUGS (5)
  1. MYOZYME [Suspect]
     Indication: GLYCOGEN STORAGE DISEASE TYPE II
     Dosage: 1200 MG, INTRAVENOUS
     Route: 042
     Dates: start: 20071106, end: 20080325
  2. TICLOPIDINE HCL [Suspect]
     Dosage: ORAL
     Route: 048
  3. RAMIPRIL [Suspect]
     Dosage: ORAL
     Route: 048
  4. AVODART [Suspect]
     Dosage: 0.5 MG
  5. EFFEXOR [Suspect]
     Dosage: 75 MG, ORAL
     Route: 048

REACTIONS (7)
  - GASTRIC NEOPLASM [None]
  - GENERAL PHYSICAL HEALTH DETERIORATION [None]
  - HERPES ZOSTER [None]
  - METASTASES TO PERITONEUM [None]
  - PLEURAL EFFUSION [None]
  - PULMONARY EMBOLISM [None]
  - RESPIRATORY DISORDER [None]
